FAERS Safety Report 8598246-4 (Version None)
Quarter: 2012Q3

REPORT INFORMATION
  Report Type: 
  Country: None (occurrence: None)
  Receive Date: 20120816
  Receipt Date: 20120813
  Transmission Date: 20120928
  Serious: Yes (Life-Threatening)
  Sender: FDA-Public Use
  Company Number: DE-B.I. PHARMACEUTICALS,INC./RIDGEFIELD-2012-DE-01694DE

PATIENT
  Sex: Female
  Weight: 73 kg

DRUGS (2)
  1. METOPROLOL TARTRATE [Concomitant]
     Indication: TACHYARRHYTHMIA
     Dosage: 190 MG
     Dates: start: 20120710, end: 20120716
  2. PRADAXA [Suspect]
     Indication: ATRIAL FIBRILLATION
     Dosage: 300 MG
     Dates: start: 20120710, end: 20120716

REACTIONS (2)
  - HEMIPLEGIA [None]
  - CEREBRAL ISCHAEMIA [None]
